FAERS Safety Report 22055846 (Version 1)
Quarter: 2023Q1

REPORT INFORMATION
  Report Type: Other
  Country: DE (occurrence: None)
  Receive Date: 20230302
  Receipt Date: 20230302
  Transmission Date: 20230418
  Serious: Yes (Death, Hospitalization, Other)
  Sender: FDA-Public Use
  Company Number: DE-Navinta LLC-000400

PATIENT
  Age: 6 Year
  Sex: Male

DRUGS (14)
  1. RIBAVIRIN [Suspect]
     Active Substance: RIBAVIRIN
     Indication: Borna virus infection
     Dosage: LOADING DOSE 33 MG/KG/DAY, FOLLOWING?DAYS 60 MG/KG/DAY IN 3 SINGLE DOSES, REDUCE 30 MG/ KG/DAY
     Route: 042
  2. FAVIPIRAVIR [Suspect]
     Active Substance: FAVIPIRAVIR
     Indication: Borna virus infection
     Dosage: DAY 1: 1200 MG-1200 MG-600 MG, FOLLOWING DAYS UNTIL DAY 55:600 MG TWICE DAILY
  3. REMDESIVIR [Suspect]
     Active Substance: REMDESIVIR
     Indication: Borna virus infection
     Dosage: LOADING DOSE 5 MG/ KG/DAY, FOLLOWING DAYS 2.5 MG/KG/DAY IN ONE SINGLE DOSE.
  4. CYCLOSPORINE [Concomitant]
     Active Substance: CYCLOSPORINE
     Indication: Borna virus infection
     Dosage: STARTING WITH 4.3 MG/KG/DAY IN TWO SINGLE DOSES, TARGETED PLASMA LEVEL 80 TO 100 NG/ML
  5. MYCOPHENOLIC ACID [Suspect]
     Active Substance: MYCOPHENOLIC ACID
     Indication: Borna virus infection
     Dosage: 50 MG/KG/DAY IN TWO SINGLE DOSES
  6. AMANTADINE [Suspect]
     Active Substance: AMANTADINE
     Indication: Borna virus infection
     Dosage: 5 MG/ KG/DAY IN 2 SINGLE DOSES
  7. AMPICILLIN [Concomitant]
     Active Substance: AMPICILLIN
     Indication: Evidence based treatment
  8. CEFOTAXIME [Concomitant]
     Active Substance: CEFOTAXIME SODIUM
     Indication: Evidence based treatment
  9. CLARITHROMYCIN [Concomitant]
     Active Substance: CLARITHROMYCIN
     Indication: Evidence based treatment
  10. ACYCLOVIR [Concomitant]
     Active Substance: ACYCLOVIR
     Indication: Viral infection
  11. SIROLIMUS [Concomitant]
     Active Substance: SIROLIMUS
     Indication: Immunosuppression
     Dosage: 0.2 MG/KG/DAY IN ONE SINGLE DOSE
  12. RIBAVIRIN [Suspect]
     Active Substance: RIBAVIRIN
     Indication: Borna virus infection
     Dosage: DAY 1: 1 MG/KG/DAY, DAYS 2-4: 2 MG/KG/DAY,?DAYS 5-8: 3 MG/KG/DAY
     Route: 037
  13. REMDESIVIR [Suspect]
     Active Substance: REMDESIVIR
     Indication: Borna virus infection
     Dosage: LOADING DOSE 5 MG/ KG/DAY, FOLLOWING DAYS 2.5 MG/KG/DAY IN ONE SINGLE DOSE.
  14. RIBAVIRIN [Suspect]
     Active Substance: RIBAVIRIN
     Indication: Borna virus infection
     Dosage: FOR DAY 1,1 MG/KG/DAY, FOR  2 TO 4 DAYS, 2 MG/KG/DAY AND FOR 5 TO 8 DAYS, 3 MG/KG/DAY
     Route: 042

REACTIONS (2)
  - Haemolytic anaemia [Unknown]
  - Therapy non-responder [Fatal]
